FAERS Safety Report 15894910 (Version 1)
Quarter: 2019Q1

REPORT INFORMATION
  Report Type: Spontaneous
  Country: US (occurrence: US)
  Receive Date: 20190131
  Receipt Date: 20190131
  Transmission Date: 20190417
  Serious: No
  Sender: FDA-Public Use
  Company Number: US-009507513-1901USA004734

PATIENT
  Sex: Female
  Weight: 56.69 kg

DRUGS (1)
  1. NEXPLANON [Suspect]
     Active Substance: ETONOGESTREL
     Indication: CONTRACEPTION
     Dosage: EVERY 4 YEARS, LEFT ARM
     Route: 059
     Dates: start: 20170417

REACTIONS (2)
  - Circumstance or information capable of leading to medication error [Unknown]
  - Vaginal haemorrhage [Not Recovered/Not Resolved]
